FAERS Safety Report 5562661-3 (Version None)
Quarter: 2007Q4

REPORT INFORMATION
  Report Type: 
  Country: None (occurrence: None)
  Receive Date: 20071217
  Receipt Date: 20071213
  Transmission Date: 20080405
  Serious: Yes (Death)
  Sender: FDA-Public Use
  Company Number: GB-JNJFOC-20071203666

PATIENT
  Sex: Female

DRUGS (3)
  1. RISPERIDONE [Suspect]
     Indication: EPILEPSY
     Route: 048
  2. RISPERIDONE [Suspect]
     Indication: LEARNING DISABILITY
     Route: 048
  3. RISPERIDONE [Suspect]
     Indication: SCHIZOPHRENIA
     Route: 048

REACTIONS (2)
  - MALAISE [None]
  - RHABDOMYOLYSIS [None]
